FAERS Safety Report 7023341-0 (Version None)
Quarter: 2010Q3

REPORT INFORMATION
  Report Type: 
  Country: None (occurrence: None)
  Receive Date: 20100916
  Receipt Date: 20100524
  Transmission Date: 20110219
  Serious: No
  Sender: FDA-Public Use
  Company Number: DKLU1062455

PATIENT
  Age: 8 Month
  Sex: Male
  Weight: 7.8 kg

DRUGS (3)
  1. SABRIL [Suspect]
     Indication: INFANTILE SPASMS
     Dosage: 250 MG MILLIGRAMS(S), 2 IN 1 D, ORAL
     Route: 048
     Dates: start: 20100504
  2. TOPAMAX [Concomitant]
  3. KLONOPIN [Concomitant]

REACTIONS (1)
  - SKIN DISORDER [None]
